FAERS Safety Report 24808810 (Version 2)
Quarter: 2025Q2

REPORT INFORMATION
  Report Type: Spontaneous
  Country: NL (occurrence: NL)
  Receive Date: 20250106
  Receipt Date: 20250422
  Transmission Date: 20250716
  Serious: Yes (Death, Other)
  Sender: JOHNSON AND JOHNSON
  Company Number: NL-JNJFOC-20250105945

PATIENT
  Age: 62 Year
  Sex: Male

DRUGS (1)
  1. DARZALEX [Suspect]
     Active Substance: DARATUMUMAB
     Indication: Warm autoimmune haemolytic anaemia
     Route: 058
     Dates: start: 20241224

REACTIONS (5)
  - Shock haemorrhagic [Fatal]
  - Renal haematoma [Fatal]
  - Epstein-Barr virus infection reactivation [Unknown]
  - Systemic mycosis [Unknown]
  - Off label use [Unknown]
